FAERS Safety Report 7655299-5 (Version None)
Quarter: 2011Q3

REPORT INFORMATION
  Report Type: 
  Country: None (occurrence: None)
  Receive Date: 20110729
  Receipt Date: 20110715
  Transmission Date: 20111222
  Serious: Yes (Hospitalization)
  Sender: FDA-Public Use
  Company Number: TPG2011A00951

PATIENT
  Age: 67 Year
  Sex: Female

DRUGS (5)
  1. BISOPROLOL PLUS (HYDROCHLOROTHIAZIDE) [Concomitant]
  2. OLMESARTAN MEDOXOMIL [Concomitant]
  3. PRAVASTATIN [Concomitant]
  4. PIOGLITAZONE HYDROCHLORIDE/METFORMIN HYDROCHLORIDE [Suspect]
     Indication: TYPE 2 DIABETES MELLITUS
     Dosage: PIOGLITAZONE/METFORMIN 15/850 MG, PER ORAL
     Route: 048
     Dates: start: 20070101, end: 20110513
  5. BISOPROLOL PLUSA (BISOPROLOL HEMIFURATE) [Concomitant]

REACTIONS (2)
  - FALL [None]
  - HUMERUS FRACTURE [None]
